FAERS Safety Report 5508212-0 (Version None)
Quarter: 2007Q4

REPORT INFORMATION
  Report Type: 
  Country: None (occurrence: None)
  Receive Date: 20071106
  Receipt Date: 20071025
  Transmission Date: 20080405
  Serious: Yes (Other)
  Sender: FDA-Public Use
  Company Number: PH-PFIZER INC-2007090642

PATIENT
  Sex: Female

DRUGS (2)
  1. DILANTIN [Suspect]
     Indication: CONVULSION
     Route: 048
  2. DEPAKOTE [Concomitant]

REACTIONS (4)
  - CONJUNCTIVITIS [None]
  - PHARYNGOLARYNGEAL PAIN [None]
  - STATUS EPILEPTICUS [None]
  - STEVENS-JOHNSON SYNDROME [None]
